FAERS Safety Report 4371148-5 (Version None)
Quarter: 2004Q2

REPORT INFORMATION
  Report Type: 
  Country: None (occurrence: None)
  Receive Date: 20040601
  Receipt Date: 20040518
  Transmission Date: 20050107
  Serious: Yes (Other)
  Sender: FDA-Public Use
  Company Number: NSADSS2003003632

PATIENT
  Age: 58 Year
  Sex: Female
  Weight: 45.3597 kg

DRUGS (22)
  1. REMICADE [Suspect]
     Indication: RHEUMATOID ARTHRITIS
     Dosage: 200 MG, 1 IN 1 AS NECESSARY, INTRAVENOUS DRIP
     Route: 041
     Dates: start: 20000101, end: 20000101
  2. PREDNISONE TAB [Concomitant]
  3. CALCIUM (CALCIUM) [Concomitant]
  4. MESTINON [Concomitant]
  5. PRILOSEC [Concomitant]
  6. MULTIVITAMIN [Concomitant]
  7. PAXIL [Concomitant]
  8. METHOTREXATE SODIUM [Concomitant]
  9. VICODIN [Concomitant]
  10. EVISTA [Concomitant]
  11. MESTINON CR (PYRIDOSTIGMINE BROMIDE) [Concomitant]
  12. B 12 (CYANOCOBALAMIN) [Concomitant]
  13. HUMIRA [Concomitant]
  14. TYLENOL [Concomitant]
  15. ARTIFICAL TEARS (ARTIFICIAL TEARS) [Concomitant]
  16. OMEPRAZOLE [Concomitant]
  17. DITROPAN XL [Concomitant]
  18. NYSTATIN [Concomitant]
  19. VITAMIN E [Concomitant]
  20. FOLIC ACID [Concomitant]
  21. DARVOCET-N 100 [Concomitant]
  22. ACTONEL [Concomitant]

REACTIONS (2)
  - ASTHENIA [None]
  - DRUG INEFFECTIVE [None]
